FAERS Safety Report 5990713-2 (Version None)
Quarter: 2008Q4

REPORT INFORMATION
  Report Type: 
  Country: None (occurrence: None)
  Receive Date: 20081211
  Receipt Date: 20081204
  Transmission Date: 20090506
  Serious: Yes (Other)
  Sender: FDA-Public Use
  Company Number: PHHY2008DE25591

PATIENT

DRUGS (1)
  1. RASILEZ [Suspect]
     Dosage: UNK
     Dates: start: 20080619

REACTIONS (2)
  - BLOOD CREATININE INCREASED [None]
  - BRAIN NATRIURETIC PEPTIDE INCREASED [None]
